FAERS Safety Report 14705124 (Version 1)
Quarter: 2018Q2

REPORT INFORMATION
  Report Type: Spontaneous
  Country: ZA (occurrence: ZA)
  Receive Date: 20180402
  Receipt Date: 20180402
  Transmission Date: 20180711
  Serious: Yes (Hospitalization)
  Sender: FDA-Public Use
  Company Number: ZA-PFIZER INC-2018129933

PATIENT
  Age: 68 Year
  Sex: Female

DRUGS (9)
  1. INDAPAMIDE. [Suspect]
     Active Substance: INDAPAMIDE
     Dosage: 2.5 MG, UNK
  2. LETHYL [Suspect]
     Active Substance: PHENOBARBITAL
     Dosage: 30 MG, UNK
  3. SERRAPRESS 20 [Suspect]
     Active Substance: PAROXETINE HYDROCHLORIDE
     Dosage: 20 MG, UNK
  4. BILOCOR [Suspect]
     Active Substance: BISOPROLOL FUMARATE
     Dosage: 5 MG, UNK
  5. ADCO-SIMVASTATIN [Suspect]
     Active Substance: SIMVASTATIN
     Dosage: 20 MG, UNK
  6. FOXAIR [Suspect]
     Active Substance: FLUTICASONE PROPIONATE\SALMETEROL XINAFOATE
     Dosage: 50/500 MG, UNK
  7. PREMARIN [Suspect]
     Active Substance: ESTROGENS, CONJUGATED
     Dosage: 0.625 MG, UNK
  8. KESSAR [Suspect]
     Active Substance: TAMOXIFEN CITRATE
     Dosage: 20 MG, UNK
  9. ELTROXIN [Suspect]
     Active Substance: LEVOTHYROXINE
     Dosage: 50 MCG, UNK

REACTIONS (1)
  - Scarlet fever [Unknown]
